FAERS Safety Report 6603439-9 (Version None)
Quarter: 2010Q1

REPORT INFORMATION
  Report Type: 
  Country: None (occurrence: None)
  Receive Date: 20100226
  Receipt Date: 20090518
  Transmission Date: 20100710
  Serious: No
  Sender: FDA-Public Use
  Company Number: A0786154A

PATIENT
  Sex: Female

DRUGS (1)
  1. VALTREX [Suspect]
     Indication: FIBROMYALGIA
     Route: 048

REACTIONS (6)
  - CHAPPED LIPS [None]
  - FOOD ALLERGY [None]
  - GENITAL BURNING SENSATION [None]
  - MEDICATION ERROR [None]
  - OFF LABEL USE [None]
  - ORAL DISCOMFORT [None]
